FAERS Safety Report 6167216-8 (Version None)
Quarter: 2009Q2

REPORT INFORMATION
  Report Type: 
  Country: None (occurrence: None)
  Receive Date: 20090424
  Receipt Date: 20090414
  Transmission Date: 20091009
  Serious: Yes (Other)
  Sender: FDA-Public Use
  Company Number: JP-PFIZER INC-2009200889

PATIENT

DRUGS (3)
  1. LINEZOLID [Suspect]
     Indication: ABSCESS
     Dosage: 600 MG, 2X/DAY
     Route: 042
  2. LINCOMYCIN [Concomitant]
  3. VANCOMYCIN [Concomitant]

REACTIONS (2)
  - DRUG INEFFECTIVE [None]
  - THROMBOCYTOPENIA [None]
